FAERS Safety Report 10181675 (Version 1)
Quarter: 2014Q2

REPORT INFORMATION
  Report Type: Spontaneous
  Country: GB (occurrence: GB)
  Receive Date: 20140519
  Receipt Date: 20140519
  Transmission Date: 20141212
  Serious: Yes (Hospitalization)
  Sender: FDA-Public Use
  Company Number: GB-ACTAVIS-2014-09972

PATIENT
  Age: 85 Year
  Sex: Female

DRUGS (3)
  1. DONEPEZIL (UNKNOWN) [Suspect]
     Indication: DEMENTIA
     Dosage: 10 MG, QHS
     Route: 048
     Dates: end: 20140420
  2. LEVOTHYROXINE [Concomitant]
     Indication: PRODUCT USED FOR UNKNOWN INDICATION
     Dosage: UNK
     Route: 065
  3. SIMVASTATIN [Concomitant]
     Indication: PRODUCT USED FOR UNKNOWN INDICATION
     Dosage: UNK
     Route: 065

REACTIONS (2)
  - Atrioventricular block [Recovering/Resolving]
  - Bradycardia [Recovering/Resolving]
